FAERS Safety Report 13864667 (Version 1)
Quarter: 2017Q3

REPORT INFORMATION
  Report Type: Spontaneous
  Country: US (occurrence: US)
  Receive Date: 20170813
  Receipt Date: 20170813
  Transmission Date: 20171127
  Serious: Yes (Hospitalization)
  Sender: FDA-Public Use
  Company Number: None

PATIENT
  Age: 26 Year
  Sex: Female
  Weight: 49.05 kg

DRUGS (7)
  1. PROAIR HFA [Concomitant]
     Active Substance: ALBUTEROL SULFATE
  2. DIAZEPAM. [Concomitant]
     Active Substance: DIAZEPAM
  3. DEXTROAMPHET SACCHARAT, AMPHET ASPARTATE, DEXTROAMPHET SULFATE AND AMPHET SULFAT [Suspect]
     Active Substance: AMPHETAMINE ASPARTATE\AMPHETAMINE SULFATE\DEXTROAMPHETAMINE SACCHARATE\DEXTROAMPHETAMINE SULFATE
     Indication: ATTENTION DEFICIT/HYPERACTIVITY DISORDER
     Dosage: ?          QUANTITY:1 CAPSULE(S);?
     Route: 048
     Dates: end: 20170813
  4. TEA TREE OIL. [Concomitant]
     Active Substance: TEA TREE OIL
  5. EFFEXOR XR [Concomitant]
     Active Substance: VENLAFAXINE HYDROCHLORIDE
  6. WOMEN^S ONE-A-DAY MULTIVITAMIN [Concomitant]
     Active Substance: VITAMINS
  7. VALERIAN LIQUID EXTRACT [Concomitant]

REACTIONS (3)
  - Anxiety [None]
  - Dyspnoea [None]
  - Panic attack [None]

NARRATIVE: CASE EVENT DATE: 20170807
